FAERS Safety Report 9440352 (Version 2)
Quarter: 2014Q1

REPORT INFORMATION
  Report Type: Spontaneous
  Country: US (occurrence: US)
  Receive Date: 20130805
  Receipt Date: 20140110
  Transmission Date: 20141002
  Serious: Yes (Death, Hospitalization)
  Sender: FDA-Public Use
  Company Number: US-SANOFI-AVENTIS-2013SA043640

PATIENT
  Age: 76 Year
  Sex: Female

DRUGS (19)
  1. PLAVIX [Suspect]
     Indication: TYPE 2 DIABETES MELLITUS
     Dates: start: 20121106, end: 20121108
  2. ACETYLSALICYLIC ACID [Suspect]
  3. HUMALOG [Concomitant]
     Indication: TYPE 2 DIABETES MELLITUS
     Route: 058
  4. BLINDED THERAPY [Concomitant]
     Indication: TYPE 2 DIABETES MELLITUS
     Dates: start: 20101124, end: 20110323
  5. BLINDED THERAPY [Concomitant]
     Indication: TYPE 2 DIABETES MELLITUS
     Dates: start: 20110713, end: 20120219
  6. BLINDED THERAPY [Concomitant]
     Indication: TYPE 2 DIABETES MELLITUS
     Dates: start: 20120308, end: 20130206
  7. BLINDED THERAPY [Concomitant]
     Indication: TYPE 2 DIABETES MELLITUS
  8. BETA BLOCKING AGENTS [Concomitant]
  9. HMG COA REDUCTASE INHIBITORS [Concomitant]
  10. ALL OTHER THERAPEUTIC PRODUCTS [Concomitant]
  11. ALL OTHER THERAPEUTIC PRODUCTS [Concomitant]
  12. DIURETICS [Concomitant]
  13. ANTI-ANGINAL AGENTS [Concomitant]
  14. ORGANIC NITRATES [Concomitant]
  15. ACE INHIBITOR NOS [Concomitant]
  16. TRIMETAZIDINE HYDROCHLORIDE [Concomitant]
  17. RANOLAZINE HYDROCHLORIDE [Concomitant]
  18. IVABRADINE HYDROCHLORIDE [Concomitant]
  19. SILDENAFIL [Concomitant]
     Dates: start: 20120226

REACTIONS (1)
  - Gastrointestinal haemorrhage [Fatal]
